FAERS Safety Report 7897198-X (Version None)
Quarter: 2011Q4

REPORT INFORMATION
  Report Type: 
  Country: None (occurrence: None)
  Receive Date: 20111104
  Receipt Date: 20111104
  Transmission Date: 20120403
  Serious: Yes (Other)
  Sender: FDA-Public Use
  Company Number: None

PATIENT
  Sex: Female

DRUGS (2)
  1. SKIN HAIR NAILS (1292B) BIOSAN LABORATORIES INC. [Suspect]
     Dosage: 3 TABLETS ONCE ORAL
     Route: 048
     Dates: start: 20110609
  2. BABY + ME (1231B) BIOSAN LABORATORIES INC. PRENATAL VITAMINS [Suspect]
     Dosage: 4 TABLETS ONCE ORAL
     Route: 048
     Dates: start: 20110609

REACTIONS (6)
  - INFLAMMATION [None]
  - GASTROOESOPHAGEAL REFLUX DISEASE [None]
  - LYMPHADENOPATHY [None]
  - PAIN [None]
  - DYSPEPSIA [None]
  - MUSCLE SPASMS [None]
